FAERS Safety Report 7674400-0 (Version None)
Quarter: 2011Q3

REPORT INFORMATION
  Report Type: 
  Country: None (occurrence: None)
  Receive Date: 20110810
  Receipt Date: 20110729
  Transmission Date: 20111222
  Serious: Yes (Hospitalization)
  Sender: FDA-Public Use
  Company Number: JP-ELI_LILLY_AND_COMPANY-JP201106006547

PATIENT
  Sex: Male
  Weight: 47.5 kg

DRUGS (13)
  1. MAGMITT [Concomitant]
     Indication: CONSTIPATION
     Dosage: 330 MG, TID
     Route: 048
     Dates: start: 20110510
  2. HYDROXOCOBALAMIN ACETATE [Concomitant]
     Indication: PREMEDICATION
     Dosage: 1000 MG, UNK
     Route: 030
     Dates: start: 20110511, end: 20110511
  3. CARBOPLATIN [Concomitant]
     Dosage: 300 MG, OTHER
     Route: 042
     Dates: start: 20110616, end: 20110616
  4. RABEPRAZOLE SODIUM [Concomitant]
     Indication: PROPHYLAXIS AGAINST GASTROINTESTINAL ULCER
     Dosage: 10 MG, QD
     Route: 048
     Dates: start: 20110510
  5. ALIMTA [Suspect]
     Dosage: 700 MG, OTHER
     Route: 042
     Dates: start: 20110616, end: 20110616
  6. PURSENNID [Concomitant]
     Indication: CONSTIPATION
     Dosage: 12 MG, QD
     Route: 048
     Dates: start: 20110510
  7. ARGAMATE [Concomitant]
     Dosage: 25 G, OTHER
     Route: 048
     Dates: start: 20110517, end: 20110524
  8. MUCODYNE [Concomitant]
     Dosage: 250 G, TID
     Route: 048
     Dates: start: 20110524
  9. ALIMTA [Suspect]
     Indication: LUNG ADENOCARCINOMA STAGE IV
     Dosage: 700 MG, OTHER
     Route: 042
     Dates: start: 20110519, end: 20110519
  10. PANVITAN [Concomitant]
     Indication: PREMEDICATION
     Dosage: 1 G, QD
     Route: 048
     Dates: start: 20110511
  11. MS CONTIN [Concomitant]
     Indication: CANCER PAIN
     Dosage: 10 MG, BID
     Route: 048
     Dates: start: 20110510
  12. LOXONIN [Concomitant]
     Indication: CANCER PAIN
     Dosage: 60 MG, TID
     Route: 048
     Dates: start: 20110510
  13. CARBOPLATIN [Concomitant]
     Indication: LUNG ADENOCARCINOMA STAGE IV
     Dosage: 400 MG, OTHER
     Route: 042
     Dates: start: 20110519, end: 20110519

REACTIONS (2)
  - DYSPNOEA [None]
  - LEFT VENTRICULAR HYPERTROPHY [None]
